FAERS Safety Report 7041588-4 (Version None)
Quarter: 2010Q4

REPORT INFORMATION
  Report Type: 
  Country: None (occurrence: None)
  Receive Date: 20101013
  Receipt Date: 20100601
  Transmission Date: 20110411
  Serious: No
  Sender: FDA-Public Use
  Company Number: US-ASTRAZENECA-2010SE25451

PATIENT
  Sex: Male

DRUGS (4)
  1. SYMBICORT [Suspect]
     Route: 055
  2. PULMICORT [Suspect]
     Route: 055
  3. RHINOCORT [Suspect]
     Route: 045
  4. SEROQUEL [Suspect]
     Route: 048

REACTIONS (1)
  - MENTAL DISORDER [None]
